FAERS Safety Report 13961556 (Version 1)
Quarter: 2017Q3

REPORT INFORMATION
  Report Type: Report from Study
  Country: US (occurrence: US)
  Receive Date: 20170912
  Receipt Date: 20170912
  Transmission Date: 20171128
  Serious: Yes (Hospitalization, Other)
  Sender: FDA-Public Use
  Company Number: US-ELI_LILLY_AND_COMPANY-US201708012832

PATIENT
  Age: 75 Year
  Sex: Female

DRUGS (1)
  1. TERIPARATIDE [Suspect]
     Active Substance: TERIPARATIDE
     Indication: PRODUCT USED FOR UNKNOWN INDICATION
     Dosage: UNK UNK, UNKNOWN
     Route: 065
     Dates: start: 201511, end: 20170824

REACTIONS (6)
  - Delirium [Recovered/Resolved]
  - Nephrolithiasis [Not Recovered/Not Resolved]
  - Anaemia [Not Recovered/Not Resolved]
  - Wrist fracture [Recovering/Resolving]
  - Dysstasia [Not Recovered/Not Resolved]
  - Fear of falling [Not Recovered/Not Resolved]

NARRATIVE: CASE EVENT DATE: 201611
